FAERS Safety Report 11559107 (Version 1)
Quarter: 2015Q3

REPORT INFORMATION
  Report Type: Spontaneous
  Country: DE (occurrence: DE)
  Receive Date: 20150928
  Receipt Date: 20150928
  Transmission Date: 20151125
  Serious: Yes (Hospitalization)
  Sender: FDA-Public Use
  Company Number: DE-SUN PHARMACEUTICAL INDUSTRIES LTD-2015RR-103691

PATIENT

DRUGS (5)
  1. PARACETAMOL [Concomitant]
     Active Substance: ACETAMINOPHEN
     Indication: EAR PAIN
     Dosage: AS NEEDED
     Route: 048
  2. IBUPROFEN. [Suspect]
     Active Substance: IBUPROFEN
     Indication: EAR PAIN
     Dosage: 1200 MG, DAILY
     Route: 048
     Dates: start: 20150814, end: 20150818
  3. CIPROFLOXACIN. [Concomitant]
     Active Substance: CIPROFLOXACIN
     Indication: OTITIS MEDIA
     Dosage: 1000 MG, DAILY
     Route: 048
     Dates: start: 20150816
  4. CIPROFLOXACIN TROPFEN [Concomitant]
     Indication: OTITIS MEDIA
     Dosage: UNK
     Route: 065
     Dates: start: 20150816
  5. AUGUMENTAN [Concomitant]
     Indication: FEBRILE INFECTION
     Dosage: UNK
     Route: 048
     Dates: start: 20150809, end: 20150816

REACTIONS (1)
  - Acute kidney injury [Recovering/Resolving]

NARRATIVE: CASE EVENT DATE: 20150819
